FAERS Safety Report 15970969 (Version 2)
Quarter: 2019Q1

REPORT INFORMATION
  Report Type: Report from Study
  Country: KR (occurrence: KR)
  Receive Date: 20190215
  Receipt Date: 20190320
  Transmission Date: 20190418
  Serious: Yes (Hospitalization)
  Sender: FDA-Public Use
  Company Number: KR-009507513-1902KOR004390

PATIENT
  Age: 57 Year
  Sex: Female
  Weight: 55 kg

DRUGS (4)
  1. PEMBROLIZUMAB. [Suspect]
     Active Substance: PEMBROLIZUMAB
     Indication: MALIGNANT MELANOMA
     Dosage: 2MG/KG, EVERY 3 WEEKS
     Route: 042
     Dates: start: 20181113, end: 20181113
  2. PEMBROLIZUMAB. [Suspect]
     Active Substance: PEMBROLIZUMAB
     Dosage: 2MG/KG, EVERY 3 WEEKS
     Route: 042
     Dates: start: 20181224, end: 20181224
  3. PEMBROLIZUMAB. [Suspect]
     Active Substance: PEMBROLIZUMAB
     Dosage: 2MG/KG, EVERY 3 WEEKS
     Route: 042
     Dates: start: 20190114, end: 20190114
  4. PEMBROLIZUMAB. [Suspect]
     Active Substance: PEMBROLIZUMAB
     Dosage: 2MG/KG, EVERY 3 WEEKS
     Route: 042
     Dates: start: 20181204, end: 20181204

REACTIONS (2)
  - Pain in extremity [Recovered/Resolved]
  - Inappropriate schedule of product administration [Unknown]

NARRATIVE: CASE EVENT DATE: 201812
